FAERS Safety Report 8719083 (Version 2)
Quarter: 2013Q4

REPORT INFORMATION
  Report Type: Spontaneous
  Country: US (occurrence: US)
  Receive Date: 20120813
  Receipt Date: 20131101
  Transmission Date: 20140711
  Serious: No
  Sender: FDA-Public Use
  Company Number: US-009507513-1206USA04318

PATIENT
  Age: 53 Year
  Sex: Male
  Weight: 94.79 kg

DRUGS (2)
  1. JANUMET [Suspect]
     Indication: DIABETES MELLITUS
     Dosage: 1000MG/50
     Route: 048
     Dates: start: 20120612, end: 20120616
  2. SIMVASTATIN [Concomitant]
     Dosage: UNK MG, UNK
     Route: 048

REACTIONS (2)
  - Fatigue [Recovered/Resolved]
  - Somnolence [Recovered/Resolved]
